FAERS Safety Report 4478813-X (Version None)
Quarter: 2004Q3

REPORT INFORMATION
  Report Type: 
  Country: None (occurrence: None)
  Receive Date: 20040923
  Receipt Date: 20040722
  Transmission Date: 20050211
  Serious: No
  Sender: FDA-Public Use
  Company Number: USA040773294

PATIENT
  Age: 81 Year
  Sex: Female
  Weight: 66 kg

DRUGS (6)
  1. FORTEO [Suspect]
     Indication: OSTEOPOROSIS
     Dosage: 20 UG DAY
     Dates: start: 20040601
  2. OCUVITE [Concomitant]
  3. CALCIUM W/VITAMIN D [Concomitant]
  4. TIAZAC [Concomitant]
  5. ADVAIR DISKUS 100/50 [Concomitant]
  6. MULTIVITAMIN [Concomitant]

REACTIONS (1)
  - INJECTION SITE HAEMORRHAGE [None]
